FAERS Safety Report 7967253-4 (Version None)
Quarter: 2011Q4

REPORT INFORMATION
  Report Type: 
  Country: None (occurrence: None)
  Receive Date: 20111209
  Receipt Date: 20111128
  Transmission Date: 20120403
  Serious: Yes (Other)
  Sender: FDA-Public Use
  Company Number: US-BAYER-2011-029612

PATIENT
  Age: 28 Year
  Sex: Female
  Weight: 95.238 kg

DRUGS (14)
  1. PRILOSEC [Concomitant]
     Dosage: UNK
     Dates: start: 20090910
  2. DROSPIRENONE AND ETHINYL ESTRADIOL [Suspect]
     Indication: MENSTRUAL CYCLE MANAGEMENT
  3. MOTRIN [Concomitant]
     Indication: ANALGESIC THERAPY
     Dosage: UNK UNK, PRN
     Dates: start: 20010101
  4. PEPCID AC [Concomitant]
     Indication: GASTROOESOPHAGEAL REFLUX DISEASE
     Dosage: UNK UNK, PRN
     Dates: start: 20080101
  5. OTC COLON CLEANSE [Concomitant]
     Dosage: UNK
     Dates: start: 20091009
  6. KELP [Concomitant]
     Dosage: UNK
     Dates: start: 20091009
  7. PREDNISONE [Concomitant]
     Dosage: UNK
     Dates: end: 20090716
  8. NYSTATIN [Concomitant]
     Dosage: UNK
     Dates: start: 20090716
  9. LORTAB [Concomitant]
     Dosage: UNK
     Dates: start: 20090909
  10. HYDROCODONE BITARTRATE AND ACETAMINOPHEN [Concomitant]
     Indication: ANALGESIC THERAPY
     Dosage: UNK UNK, PRN
     Dates: start: 20090901, end: 20091001
  11. BACTRIM [Concomitant]
     Dosage: UNK
     Dates: start: 20090909
  12. DROSPIRENONE AND ETHINYL ESTRADIOL [Suspect]
     Indication: PREMENSTRUAL SYNDROME
     Dosage: UNK
     Route: 048
     Dates: start: 20081201, end: 20100601
  13. GLYCOPYRROLATE [Concomitant]
     Indication: UNEVALUABLE EVENT
     Dosage: 1 MG, BID
     Dates: start: 20090901, end: 20091001
  14. UNCODEABLE ^UNCLASSIFIABLE^ [Concomitant]
     Dosage: 100 MG, QID
     Route: 048

REACTIONS (4)
  - BILIARY DYSKINESIA [None]
  - GALLBLADDER DISORDER [None]
  - INJURY [None]
  - PAIN [None]
